FAERS Safety Report 15098261 (Version 1)
Quarter: 2018Q3

REPORT INFORMATION
  Report Type: Spontaneous
  Country: ZA (occurrence: ZA)
  Receive Date: 20180702
  Receipt Date: 20180702
  Transmission Date: 20181010
  Serious: Yes (Hospitalization, Other)
  Sender: FDA-Public Use
  Company Number: ZA-PFIZER INC-2018263153

PATIENT
  Age: 72 Year
  Sex: Female

DRUGS (11)
  1. ASPAVOR [Suspect]
     Active Substance: ATORVASTATIN
     Dosage: UNK
  2. ASPEN /00002701/ [Suspect]
     Active Substance: ASPIRIN
     Dosage: UNK
  3. BILOCOR [Suspect]
     Active Substance: BISOPROLOL FUMARATE
     Dosage: UNK
  4. ROCALTROL [Suspect]
     Active Substance: CALCITRIOL
     Dosage: UNK
  5. AROPAX [Suspect]
     Active Substance: PAROXETINE HYDROCHLORIDE
     Dosage: UNK
  6. DIOVAN [Suspect]
     Active Substance: VALSARTAN
     Dosage: UNK
  7. DOPAQUEL [Suspect]
     Active Substance: QUETIAPINE
     Dosage: UNK
  8. ECOTRIN [Suspect]
     Active Substance: ASPIRIN
     Dosage: UNK
  9. WARFARIN [Suspect]
     Active Substance: WARFARIN
     Dosage: UNK
  10. CALTRATE WITH VITAMIN D [Suspect]
     Active Substance: CALCIUM CARBONATE\CHOLECALCIFEROL
     Dosage: UNK
  11. CARZIN XL [Suspect]
     Active Substance: DOXAZOSIN MESYLATE
     Dosage: UNK

REACTIONS (1)
  - Cerebrovascular accident [Unknown]
